FAERS Safety Report 9015160 (Version 1)
Quarter: 2013Q1

REPORT INFORMATION
  Report Type: Spontaneous
  Country: US (occurrence: None)
  Receive Date: 20130103
  Receipt Date: 20130103
  Transmission Date: 20140127
  Serious: Yes (Hospitalization)
  Sender: FDA-Public Use
  Company Number: USA/USA/12/0027268

PATIENT
  Age: 73 Year
  Sex: Male

DRUGS (8)
  1. SIMVASTATIN [Suspect]
     Indication: PRODUCT USED FOR UNKNOWN INDICATION
     Dosage: 1 IN 1 D
  2. AZITHROMYCIN [Suspect]
     Indication: BRONCHITIS
     Dosage: 1 IN 1 D
     Route: 048
  3. ALLOPURINOL 100 MG (ALLOPURINOL) [Concomitant]
  4. PREDNISONE (PREDNISONE) [Concomitant]
  5. LABETALOL (LABETALOL) [Concomitant]
  6. BUMETANIDE (BUMETANIDE) [Concomitant]
  7. AMLODIPINE BESYLATE (AMLODIPINE BESILATE0 [Concomitant]
  8. GLARGINE INSULIN (INSULIN GLARGINE) [Concomitant]

REACTIONS (3)
  - Drug interaction [None]
  - Rhabdomyolysis [None]
  - Renal failure acute [None]
